FAERS Safety Report 9113161 (Version 1)
Quarter: 2013Q1

REPORT INFORMATION
  Report Type: Spontaneous
  Country: US (occurrence: US)
  Receive Date: 20130211
  Receipt Date: 20130211
  Transmission Date: 20140127
  Serious: Yes (Hospitalization)
  Sender: FDA-Public Use
  Company Number: US-ASTRAZENECA-2013SE07850

PATIENT
  Age: 69 Year
  Sex: Female
  Weight: 94.8 kg

DRUGS (9)
  1. NEXIUM [Suspect]
     Indication: GASTROOESOPHAGEAL REFLUX DISEASE
     Route: 048
  2. TOPROL XL [Suspect]
     Indication: CARDIAC DISORDER
     Route: 048
     Dates: start: 2002
  3. TOPROL XL [Suspect]
     Indication: HYPERTENSION
     Route: 048
     Dates: start: 2002
  4. LISINOPRIL [Suspect]
     Indication: HYPERTENSION
     Route: 048
  5. PLAVIX [Concomitant]
     Indication: ANTICOAGULANT THERAPY
     Dates: start: 2002
  6. LIPITOR [Concomitant]
     Indication: BLOOD CHOLESTEROL ABNORMAL
     Dates: start: 2002
  7. ANTIVERT [Concomitant]
     Indication: BLOOD CHOLESTEROL ABNORMAL
     Dates: start: 1987
  8. ZANTAC [Concomitant]
     Indication: BLOOD CHOLESTEROL ABNORMAL
  9. PREVACID [Concomitant]
     Indication: BLOOD CHOLESTEROL ABNORMAL

REACTIONS (6)
  - Gastrooesophageal reflux disease [Unknown]
  - Blood cholesterol abnormal [Unknown]
  - Abdominal distension [Unknown]
  - Hyperventilation [Unknown]
  - Hyperhidrosis [Unknown]
  - Drug dose omission [Unknown]
